FAERS Safety Report 6093969-3 (Version None)
Quarter: 2009Q1

REPORT INFORMATION
  Report Type: 
  Country: None (occurrence: None)
  Receive Date: 20090226
  Receipt Date: 20090219
  Transmission Date: 20090719
  Serious: Yes (Hospitalization)
  Sender: FDA-Public Use
  Company Number: A0770340A

PATIENT
  Age: 57 Year
  Sex: Female

DRUGS (2)
  1. TYKERB [Suspect]
     Route: 048
     Dates: start: 20090201
  2. XELODA [Suspect]
     Dates: start: 20090201

REACTIONS (2)
  - NAUSEA [None]
  - PANCREATITIS [None]
